FAERS Safety Report 26142046 (Version 1)
Quarter: 2025Q4

REPORT INFORMATION
  Report Type: Spontaneous
  Country: US (occurrence: None)
  Receive Date: 20251210
  Receipt Date: 20251210
  Transmission Date: 20260118
  Serious: Yes (Other)
  Sender: FDA-CTU
  Company Number: None

PATIENT
  Age: 18 Year
  Sex: Female
  Weight: 110.7 kg

DRUGS (1)
  1. WEGOVY [Suspect]
     Active Substance: SEMAGLUTIDE
     Indication: Weight decreased
     Dosage: OTHER FREQUENCY : WEEKLY;
     Route: 058

REACTIONS (1)
  - Injection site pain [None]

NARRATIVE: CASE EVENT DATE: 20251209
